FAERS Safety Report 6088012-6 (Version None)
Quarter: 2009Q1

REPORT INFORMATION
  Report Type: 
  Country: None (occurrence: None)
  Receive Date: 20090219
  Receipt Date: 20090206
  Transmission Date: 20090719
  Serious: Yes (Death, Hospitalization)
  Sender: FDA-Public Use
  Company Number: 2008AL010734

PATIENT
  Age: 73 Year
  Sex: Female
  Weight: 75.2971 kg

DRUGS (15)
  1. DIGOXIN [Suspect]
     Indication: CARDIAC DISORDER
     Dosage: 025.MG, DAILY PO
     Route: 048
  2. KCL (10MEQ BID) [Concomitant]
  3. METOPROLOL (25MG DAILY) [Concomitant]
  4. ARIMIDEX (1MG DAILY) [Concomitant]
  5. DIOVAN (80 MG DAILY) [Concomitant]
  6. DYAZIDE (1 DAILY) [Concomitant]
  7. BABY ASPIRIN (81MG DAILY) [Concomitant]
  8. LASIX (80MG DAILY) [Concomitant]
  9. COREG [Concomitant]
  10. SPIRONOLACTONE (25MG BID) [Concomitant]
  11. ALLOPURINOL (50MG DAILY) [Concomitant]
  12. FEOSOL (65MG TID) [Concomitant]
  13. AMIODARONE HYDROCHLORIDE [Concomitant]
  14. ALDACTONE [Concomitant]
  15. FERROUS SULFATE (325MG TID) [Concomitant]

REACTIONS (42)
  - ABDOMINAL DISTENSION [None]
  - ANXIETY [None]
  - ASCITES [None]
  - BREATH SOUNDS ABNORMAL [None]
  - BUNDLE BRANCH BLOCK RIGHT [None]
  - CARDIAC FAILURE CONGESTIVE [None]
  - CARDIAC MURMUR [None]
  - CHROMATOPSIA [None]
  - CONDITION AGGRAVATED [None]
  - COUGH [None]
  - DECREASED APPETITE [None]
  - DEHYDRATION [None]
  - DIALYSIS [None]
  - EXERCISE TOLERANCE DECREASED [None]
  - GASTROENTERITIS [None]
  - HYPERKALAEMIA [None]
  - HYPERTENSION [None]
  - HYPERTENSIVE HEART DISEASE [None]
  - HYPOXIA [None]
  - INFLUENZA [None]
  - LEFT VENTRICULAR DYSFUNCTION [None]
  - MITRAL VALVE INCOMPETENCE [None]
  - MYOCARDIAL INFARCTION [None]
  - NASOPHARYNGITIS [None]
  - OEDEMA PERIPHERAL [None]
  - ORTHOPNOEA [None]
  - PAIN [None]
  - PEDAL PULSE DECREASED [None]
  - PIGMENTATION DISORDER [None]
  - PLEURAL EFFUSION [None]
  - POLYCYTHAEMIA [None]
  - QRS AXIS ABNORMAL [None]
  - RENAL FAILURE [None]
  - RENAL FAILURE CHRONIC [None]
  - RESTLESSNESS [None]
  - SKIN TURGOR DECREASED [None]
  - SYNCOPE [None]
  - THERAPEUTIC AGENT TOXICITY [None]
  - TRICUSPID VALVE INCOMPETENCE [None]
  - VASODILATATION [None]
  - WEIGHT DECREASED [None]
  - WEIGHT INCREASED [None]
